FAERS Safety Report 5755030-4 (Version None)
Quarter: 2008Q2

REPORT INFORMATION
  Report Type: 
  Country: None (occurrence: None)
  Receive Date: 20080528
  Receipt Date: 20080528
  Transmission Date: 20081010
  Serious: No
  Sender: FDA-Public Use
  Company Number: None

PATIENT

DRUGS (1)
  1. SINGULAIR [Suspect]

REACTIONS (12)
  - ABDOMINAL PAIN UPPER [None]
  - AGGRESSION [None]
  - ANXIETY [None]
  - CRYING [None]
  - DARK CIRCLES UNDER EYES [None]
  - DROOLING [None]
  - HEADACHE [None]
  - MENTAL DISORDER [None]
  - PAIN IN EXTREMITY [None]
  - SCREAMING [None]
  - STOMACH DISCOMFORT [None]
  - SUICIDAL IDEATION [None]
